FAERS Safety Report 16583055 (Version 1)
Quarter: 2019Q3

REPORT INFORMATION
  Report Type: Other
  Country: SE (occurrence: SE)
  Receive Date: 20190717
  Receipt Date: 20190717
  Transmission Date: 20191004
  Serious: Yes (Disabling)
  Sender: FDA-Public Use
  Company Number: SE-DENTSPLY-2019SCDP000383

PATIENT
  Age: 65 Year
  Sex: Female
  Weight: 88 kg

DRUGS (1)
  1. XYLOCAINE WITH ADRENALINE (EPINEPHRINE) [Suspect]
     Active Substance: EPINEPHRINE BITARTRATE\LIDOCAINE HYDROCHLORIDE
     Indication: MAMMOPLASTY
     Dosage: 160 MILLILITER, 0.8%
     Dates: start: 20020107, end: 20020107

REACTIONS (1)
  - Polyneuropathy [None]

NARRATIVE: CASE EVENT DATE: 20030101
